FAERS Safety Report 25565528 (Version 1)
Quarter: 2025Q3

REPORT INFORMATION
  Report Type: Spontaneous
  Country: US (occurrence: US)
  Receive Date: 20250716
  Receipt Date: 20250716
  Transmission Date: 20251020
  Serious: Yes (Other)
  Sender: NOVO NORDISK
  Company Number: US-NOVOPROD-1299816

PATIENT
  Age: 73 Year
  Sex: Female
  Weight: 82.5 kg

DRUGS (12)
  1. OZEMPIC [Suspect]
     Active Substance: SEMAGLUTIDE
     Indication: Cardiovascular disorder
     Dosage: 0.25 MG, QW
     Route: 058
     Dates: start: 20240318, end: 20240501
  2. OMEPRAZOLE [Concomitant]
     Active Substance: OMEPRAZOLE
     Indication: Gastrooesophageal reflux disease
     Dates: start: 20220501
  3. HYDROCHLOROTHIAZIDE [Concomitant]
     Active Substance: HYDROCHLOROTHIAZIDE
     Indication: Blood pressure measurement
     Dates: start: 20230620
  4. LOSARTAN [Concomitant]
     Active Substance: LOSARTAN
     Indication: Blood pressure measurement
     Dates: start: 20170101
  5. ATORVASTATIN [Concomitant]
     Active Substance: ATORVASTATIN
     Indication: Cardiovascular disorder
     Dates: start: 20220512
  6. METHOTREXATE [Concomitant]
     Active Substance: METHOTREXATE
     Indication: Systemic lupus erythematosus
     Dates: start: 20240201
  7. BACLOFEN [Concomitant]
     Active Substance: BACLOFEN
     Indication: Muscle spasms
     Dates: start: 20170101
  8. AMITRIPTYLINE [Concomitant]
     Active Substance: AMITRIPTYLINE
     Indication: Headache
     Dates: start: 20240301
  9. SYMBICORT [Concomitant]
     Active Substance: BUDESONIDE\FORMOTEROL FUMARATE DIHYDRATE
     Indication: Product used for unknown indication
     Route: 055
     Dates: start: 20230214
  10. FLECAINIDE [Concomitant]
     Active Substance: FLECAINIDE
     Indication: Cardiac murmur
     Dates: start: 20210101
  11. ASPIRIN [Concomitant]
     Active Substance: ASPIRIN
     Indication: Cardiovascular disorder
     Dates: start: 20190101
  12. DILTIAZEM [Concomitant]
     Active Substance: DILTIAZEM
     Indication: Heart rate abnormal
     Dates: start: 20140110

REACTIONS (6)
  - Impaired gastric emptying [Not Recovered/Not Resolved]
  - Nausea [Not Recovered/Not Resolved]
  - Vomiting [Not Recovered/Not Resolved]
  - Constipation [Not Recovered/Not Resolved]
  - Abdominal pain upper [Not Recovered/Not Resolved]
  - Product use in unapproved indication [Unknown]

NARRATIVE: CASE EVENT DATE: 20240321
